FAERS Safety Report 20483217 (Version 2)
Quarter: 2022Q1

REPORT INFORMATION
  Report Type: Spontaneous
  Country: US (occurrence: US)
  Receive Date: 20220217
  Receipt Date: 20220324
  Transmission Date: 20220424
  Serious: Yes (Other)
  Sender: FDA-Public Use
  Company Number: US-MLMSERVICE-20220202-3346741-1

PATIENT
  Age: 48 Year
  Sex: Male

DRUGS (9)
  1. FLUOROURACIL [Suspect]
     Active Substance: FLUOROURACIL
     Indication: Metastases to liver
     Dosage: 1800 MILLIGRAM/SQ. METER 1 CYCLE (FOR 46 HOURS (CYCLE 5))
     Route: 065
  2. FLUOROURACIL [Suspect]
     Active Substance: FLUOROURACIL
     Indication: Colon adenoma
     Dosage: 9600 MILLIGRAM/SQ. METER 1 CYCLE (2400 MG/M^2 GIVEN FOR 46 HOURS EVERY 2 WEEKS)
     Route: 065
     Dates: start: 2019
  3. FLUOROURACIL [Suspect]
     Active Substance: FLUOROURACIL
     Indication: Colorectal adenocarcinoma
     Dosage: 2400 MILLIGRAM/SQ. METER
     Route: 065
  4. OXALIPLATIN [Concomitant]
     Active Substance: OXALIPLATIN
     Indication: Metastases to liver
     Dosage: UNK (1 CYCLE)
     Route: 065
     Dates: start: 2019
  5. OXALIPLATIN [Concomitant]
     Active Substance: OXALIPLATIN
     Indication: Colon adenoma
  6. OXALIPLATIN [Concomitant]
     Active Substance: OXALIPLATIN
     Indication: Colorectal adenocarcinoma
  7. CETUXIMAB [Concomitant]
     Active Substance: CETUXIMAB
     Indication: Metastases to liver
     Dosage: UNK (1 CYCLE)
     Route: 065
     Dates: start: 2019
  8. CETUXIMAB [Concomitant]
     Active Substance: CETUXIMAB
     Indication: Colorectal adenocarcinoma
  9. CETUXIMAB [Concomitant]
     Active Substance: CETUXIMAB
     Indication: Colon adenoma

REACTIONS (5)
  - Electrocardiogram ST segment elevation [Recovered/Resolved]
  - Atrial fibrillation [Recovered/Resolved]
  - Arteriospasm coronary [Recovered/Resolved]
  - Coronary artery stenosis [Recovered/Resolved]
  - Cardiotoxicity [Recovered/Resolved]
